FAERS Safety Report 7780107-1 (Version None)
Quarter: 2011Q3

REPORT INFORMATION
  Report Type: 
  Country: None (occurrence: None)
  Receive Date: 20110922
  Receipt Date: 20110907
  Transmission Date: 20111222
  Serious: Yes (Hospitalization, Other)
  Sender: FDA-Public Use
  Company Number: 1000022931

PATIENT
  Age: 81 Year
  Sex: Male

DRUGS (7)
  1. GASTER (OMEPRAZOLE) (OMEPRAZOLE) [Concomitant]
  2. DOGMATYL(SULPIRIDE) (SULPIRIDE) [Concomitant]
  3. MEMANTINE [Suspect]
     Indication: DEMENTIA ALZHEIMER'S TYPE
     Dosage: 5 MG (5 MG, 1 IN 1 D),ORAL, 10 MG (10 MG,1 IN 1 D),ORA L
     Route: 048
     Dates: start: 20110622, end: 20110718
  4. MEMANTINE [Suspect]
     Indication: DEMENTIA ALZHEIMER'S TYPE
     Dosage: 5 MG (5 MG, 1 IN 1 D),ORAL, 10 MG (10 MG,1 IN 1 D),ORA L
     Route: 048
     Dates: start: 20110614, end: 20110621
  5. MEMANTINE [Suspect]
     Indication: DEMENTIA ALZHEIMER'S TYPE
     Dosage: 15 MG (15 MG, 1 IN 1 D),ORAL
     Route: 048
     Dates: start: 20110719, end: 20110726
  6. AMLODIN (AMLODIPINE BESILATE)(AMLODIPINE BESILATE) [Concomitant]
  7. PREMINENT (LOSARTAN POTASSIUM, HYDROCHLOROTHIAZIDE) (LOSARTAN POTASSIU [Concomitant]

REACTIONS (9)
  - DEHYDRATION [None]
  - RED BLOOD CELL COUNT DECREASED [None]
  - BRAIN NATRIURETIC PEPTIDE INCREASED [None]
  - SOMNOLENCE [None]
  - BLOOD POTASSIUM DECREASED [None]
  - RHABDOMYOLYSIS [None]
  - BLOOD GLUCOSE INCREASED [None]
  - EXERCISE TOLERANCE DECREASED [None]
  - BLOOD CREATININE INCREASED [None]
